FAERS Safety Report 4270204-X (Version None)
Quarter: 2004Q1

REPORT INFORMATION
  Report Type: 
  Country: None (occurrence: None)
  Receive Date: 20040112
  Receipt Date: 20040112
  Transmission Date: 20041129
  Serious: Yes (Hospitalization)
  Sender: FDA-Public Use
  Company Number: None

PATIENT
  Age: 78 Year
  Sex: Male

DRUGS (1)
  1. TAXOTERE [Suspect]
     Indication: CARCINOMA
     Dosage: 63 MG

REACTIONS (2)
  - GASTROENTERITIS [None]
  - NEUTROPENIA [None]
